FAERS Safety Report 18687041 (Version 1)
Quarter: 2020Q4

REPORT INFORMATION
  Report Type: Spontaneous
  Country: EG (occurrence: EG)
  Receive Date: 20201231
  Receipt Date: 20201231
  Transmission Date: 20210114
  Serious: Yes (Life-Threatening)
  Sender: FDA-Public Use
  Company Number: EG-HIKMA PHARMACEUTICALS USA INC.-EG-H14001-20-05832

PATIENT
  Age: 37 Year
  Sex: Male

DRUGS (2)
  1. ETOPUL [Suspect]
     Active Substance: ETOPOSIDE
     Indication: RENAL CANCER
     Route: 042
     Dates: start: 20200927
  2. CISPLATIN. [Concomitant]
     Active Substance: CISPLATIN
     Indication: RENAL CANCER
     Route: 042
     Dates: start: 20200927

REACTIONS (3)
  - Dyspnoea [Unknown]
  - Erythema [Unknown]
  - Hyperhidrosis [Unknown]
